FAERS Safety Report 6059595-7 (Version None)
Quarter: 2009Q1

REPORT INFORMATION
  Report Type: 
  Country: None (occurrence: None)
  Receive Date: 20090130
  Receipt Date: 20090121
  Transmission Date: 20090719
  Serious: Yes (Hospitalization)
  Sender: FDA-Public Use
  Company Number: BE-ABBOTT-08P-013-0473149-01

PATIENT
  Sex: Male

DRUGS (10)
  1. HUMIRA [Suspect]
     Indication: RHEUMATOID ARTHRITIS
     Route: 058
     Dates: start: 20040615
  2. HUMIRA [Concomitant]
     Indication: RHEUMATOID ARTHRITIS
     Route: 058
     Dates: start: 20040525
  3. CORUNO [Concomitant]
     Indication: ANGINA PECTORIS
  4. OMEPRAZOLE [Concomitant]
     Indication: GASTRITIS PROPHYLAXIS
  5. ZESTRIL [Concomitant]
     Indication: HYPERTENSION
  6. SECTRAL [Concomitant]
     Indication: HYPERTENSION
  7. MINIDIAB [Concomitant]
     Indication: DIABETES MELLITUS
  8. PRAVACHOL [Concomitant]
     Indication: BLOOD CHOLESTEROL
  9. LORMETAZEPAM [Concomitant]
     Indication: ANXIOLYTIC THERAPY
  10. PLAVIX [Concomitant]
     Indication: THROMBOSIS PROPHYLAXIS

REACTIONS (1)
  - LYMPHADENOPATHY [None]
